FAERS Safety Report 25110843 (Version 1)
Quarter: 2025Q1

REPORT INFORMATION
  Report Type: Spontaneous
  Country: RU (occurrence: RU)
  Receive Date: 20250324
  Receipt Date: 20250324
  Transmission Date: 20250409
  Serious: Yes (Hospitalization, Other)
  Sender: ROCHE
  Company Number: RU-ROCHE-10000232659

PATIENT
  Age: 68 Year
  Sex: Male

DRUGS (8)
  1. ATEZOLIZUMAB [Suspect]
     Active Substance: ATEZOLIZUMAB
     Indication: Bladder cancer stage III
     Route: 065
     Dates: start: 20240419, end: 20250124
  2. ATEZOLIZUMAB [Suspect]
     Active Substance: ATEZOLIZUMAB
     Indication: Metastases to lymph nodes
  3. GEMCITABINE [Suspect]
     Active Substance: GEMCITABINE
     Indication: Bladder cancer stage III
     Route: 065
     Dates: start: 20230330, end: 20230608
  4. GEMCITABINE [Suspect]
     Active Substance: GEMCITABINE
     Indication: Metastases to lymph nodes
  5. CISPLATIN [Suspect]
     Active Substance: CISPLATIN
     Indication: Bladder cancer stage III
     Route: 065
     Dates: start: 20230330, end: 20230608
  6. CISPLATIN [Suspect]
     Active Substance: CISPLATIN
     Indication: Metastases to lymph nodes
  7. OMA (zoledronic acid) [Concomitant]
  8. PACLITAXEL [Concomitant]
     Active Substance: PACLITAXEL
     Dosage: DOSE REDUCTION BY 25%, TAKING INTO ACCOUNT THE PERFORMANCE STATUS, ECOG STATUS=3 AND COMORBIDITY.
     Route: 042

REACTIONS (8)
  - Acute kidney injury [Recovered/Resolved]
  - Metastases to spine [Unknown]
  - Gastrointestinal disorder [Unknown]
  - Spondylolisthesis [Unknown]
  - Ill-defined disorder [Unknown]
  - Disease progression [Unknown]
  - Hydronephrosis [Unknown]
  - Nephropathy [Not Recovered/Not Resolved]
